FAERS Safety Report 8231933-6 (Version None)
Quarter: 2012Q1

REPORT INFORMATION
  Report Type: 
  Country: None (occurrence: None)
  Receive Date: 20120323
  Receipt Date: 20120312
  Transmission Date: 20120608
  Serious: Yes (Hospitalization)
  Sender: FDA-Public Use
  Company Number: FR-JNJFOC-20120307180

PATIENT
  Sex: Male

DRUGS (7)
  1. RIVAROXABAN [Suspect]
     Indication: THROMBOSIS PROPHYLAXIS
     Route: 048
     Dates: start: 20120201, end: 20120218
  2. DILTIAZEM HCL [Concomitant]
  3. OLMESARTAN MEDOXOMIL [Concomitant]
  4. ASPIRIN [Concomitant]
  5. RIVAROXABAN [Suspect]
     Indication: KNEE ARTHROPLASTY
     Route: 048
     Dates: start: 20120201, end: 20120218
  6. ALLOPURINOL [Concomitant]
  7. CRESTOR [Concomitant]

REACTIONS (1)
  - PULMONARY EMBOLISM [None]
